FAERS Safety Report 25736791 (Version 1)
Quarter: 2025Q3

REPORT INFORMATION
  Report Type: Spontaneous
  Country: US (occurrence: US)
  Receive Date: 20250828
  Receipt Date: 20250828
  Transmission Date: 20251021
  Serious: Yes (Other)
  Sender: ELI LILLY AND COMPANY
  Company Number: US-ELI_LILLY_AND_COMPANY-US202508022527

PATIENT
  Age: 37 Year
  Sex: Female

DRUGS (2)
  1. EBGLYSS [Suspect]
     Active Substance: LEBRIKIZUMAB-LBKZ
     Indication: Eczema
     Route: 065
     Dates: start: 20250704
  2. EBGLYSS [Suspect]
     Active Substance: LEBRIKIZUMAB-LBKZ
     Route: 058

REACTIONS (8)
  - Vision blurred [Unknown]
  - Eye pruritus [Unknown]
  - Pruritus [Unknown]
  - Eye swelling [Unknown]
  - Swelling face [Unknown]
  - Swelling [Unknown]
  - Eyelid discolouration [Unknown]
  - Skin discolouration [Unknown]
